FAERS Safety Report 9981475 (Version 1)
Quarter: 2014Q1

REPORT INFORMATION
  Report Type: Spontaneous
  Country: US (occurrence: None)
  Receive Date: 20140306
  Receipt Date: 20140306
  Transmission Date: 20141002
  Serious: Yes (Life-Threatening, Hospitalization)
  Sender: FDA-Public Use
  Company Number: None

PATIENT
  Age: 76 Year
  Sex: Female
  Weight: 76 kg

DRUGS (1)
  1. AVASTIN (BEVACIZUMAB) [Suspect]
     Indication: COLON CANCER METASTATIC
     Dosage: 300MG Q2WKS IV
     Route: 042
     Dates: start: 20140220, end: 20140206

REACTIONS (2)
  - Intestinal perforation [None]
  - Abscess [None]
